FAERS Safety Report 5635233-X (Version None)
Quarter: 2008Q1

REPORT INFORMATION
  Report Type: 
  Country: None (occurrence: None)
  Receive Date: 20080222
  Receipt Date: 20080207
  Transmission Date: 20080703
  Serious: Yes (Death)
  Sender: FDA-Public Use
  Company Number: CA-GENENTECH-256166

PATIENT

DRUGS (4)
  1. HERCEPTIN [Suspect]
     Indication: METASTATIC GASTRIC CANCER
     Dosage: 8 MG/KG, SINGLE
  2. HERCEPTIN [Suspect]
     Dosage: 6 MG/KG, Q21D
  3. CISPLATIN [Suspect]
     Indication: METASTATIC GASTRIC CANCER
     Dosage: 75 MG/M2, Q21D
  4. DOCETAXEL [Suspect]
     Indication: METASTATIC GASTRIC CANCER
     Dosage: 75 MG/M2, Q21D

REACTIONS (1)
  - UPPER GASTROINTESTINAL HAEMORRHAGE [None]
